FAERS Safety Report 25013577 (Version 1)
Quarter: 2025Q1

REPORT INFORMATION
  Report Type: Spontaneous
  Country: GR (occurrence: GR)
  Receive Date: 20250226
  Receipt Date: 20250226
  Transmission Date: 20250408
  Serious: Yes (Other)
  Sender: FERRING
  Company Number: GR-FERRINGPH-2025FE00809

PATIENT

DRUGS (1)
  1. MENOPUR [Suspect]
     Active Substance: FOLLITROPIN\LUTEINIZING HORMONE
     Indication: Infertility
     Dosage: 1500-1600 IU
     Route: 058
     Dates: start: 2017

REACTIONS (7)
  - Breast cancer [Unknown]
  - Tachycardia [Recovered/Resolved]
  - Intermenstrual bleeding [Recovered/Resolved]
  - Pain [Recovered/Resolved]
  - Dyspnoea [Recovered/Resolved]
  - Vomiting [Recovered/Resolved]
  - Accidental overdose [Recovered/Resolved]
